FAERS Safety Report 11821374 (Version 2)
Quarter: 2015Q4

REPORT INFORMATION
  Report Type: Spontaneous
  Country: US (occurrence: US)
  Receive Date: 20151210
  Receipt Date: 20151217
  Transmission Date: 20160305
  Serious: No
  Sender: FDA-Public Use
  Company Number: US-PFIZER INC-2015390388

PATIENT
  Age: 61 Year
  Sex: Male

DRUGS (1)
  1. INLYTA [Suspect]
     Active Substance: AXITINIB
     Indication: NEOPLASM MALIGNANT
     Dosage: UNK
     Dates: start: 20091117, end: 20151021

REACTIONS (3)
  - Disease progression [Unknown]
  - Neoplasm malignant [Unknown]
  - Diarrhoea [Unknown]
